FAERS Safety Report 6266986-8 (Version None)
Quarter: 2009Q3

REPORT INFORMATION
  Report Type: 
  Country: None (occurrence: None)
  Receive Date: 20090710
  Receipt Date: 20090628
  Transmission Date: 20100115
  Serious: Yes (Other)
  Sender: FDA-Public Use
  Company Number: 1-18978385

PATIENT
  Age: 62 Year
  Sex: Male

DRUGS (6)
  1. URSODIOL [Suspect]
     Dosage: ORAL
     Route: 048
  2. SIROLIMUS (MANUFACTURER UNKNOWN) [Suspect]
     Indication: LIVER TRANSPLANT
     Dosage: ORAL
     Route: 048
  3. BISOPROLOL FUMARATE [Concomitant]
  4. PREDNISOLONE [Concomitant]
  5. CALCICHEW (CALCIUM CARBONATE) [Concomitant]
  6. URSODEOXYCHOLIC ACID (URSODIOL) [Concomitant]

REACTIONS (1)
  - LYMPHOEDEMA [None]
